FAERS Safety Report 7497118-6 (Version None)
Quarter: 2011Q2

REPORT INFORMATION
  Report Type: 
  Country: None (occurrence: None)
  Receive Date: 20110523
  Receipt Date: 20110512
  Transmission Date: 20111010
  Serious: Yes (Death)
  Sender: FDA-Public Use
  Company Number: US-CUBIST-2011S1000342

PATIENT
  Age: 54 Year
  Sex: Male

DRUGS (7)
  1. ANTIBIOTICS [Concomitant]
     Indication: BACTERAEMIA
     Route: 065
  2. LEVOFLOXACIN [Concomitant]
     Indication: PRODUCT USED FOR UNKNOWN INDICATION
     Route: 065
  3. PIPERACILLIN AND TAZOBACTAM [Concomitant]
     Route: 042
  4. VANCOMYCIN [Concomitant]
     Indication: PRODUCT USED FOR UNKNOWN INDICATION
     Route: 042
  5. GENTAMICIN [Concomitant]
     Indication: PRODUCT USED FOR UNKNOWN INDICATION
     Route: 065
  6. CUBICIN [Suspect]
     Indication: BACTERAEMIA
     Route: 042
  7. VICODIN [Concomitant]
     Indication: ANALGESIC THERAPY
     Route: 065

REACTIONS (2)
  - DRUG INEFFECTIVE [None]
  - SEPTIC SHOCK [None]
